FAERS Safety Report 17283202 (Version 1)
Quarter: 2020Q1

REPORT INFORMATION
  Report Type: Spontaneous
  Country: US (occurrence: US)
  Receive Date: 20200117
  Receipt Date: 20200117
  Transmission Date: 20200409
  Serious: No
  Sender: FDA-Public Use
  Company Number: US-PFIZER INC-2020016330

PATIENT
  Age: 53 Year
  Sex: Female
  Weight: 72.57 kg

DRUGS (10)
  1. FENTANYL. [Concomitant]
     Active Substance: FENTANYL
     Indication: PAIN
     Dosage: 75 UG, (75MCG PATCH CHANGE IT EVERY 3 DAYS)
  2. OXYCODONE [Concomitant]
     Active Substance: OXYCODONE
     Indication: PAIN
     Dosage: 10 MG, 3X/DAY [10MG IMMEDIATE RELEASE TABS EVERY 8 HOURS BY MOUTH]
     Route: 048
  3. ASPIRIN [ACETYLSALICYLIC ACID] [Concomitant]
     Active Substance: ASPIRIN
     Indication: ANTICOAGULANT THERAPY
     Dosage: 81 MG, 1X/DAY [81MG CHEWABLE ONCE A DAY BY MOUTH]
     Route: 048
  4. CHANTIX [Suspect]
     Active Substance: VARENICLINE TARTRATE
     Indication: SMOKING CESSATION THERAPY
     Dosage: 0.5 MG, (STARTER PACK; 1ST WEEK)
     Route: 048
     Dates: start: 20200104, end: 20200110
  5. ONDANSETRON [Concomitant]
     Active Substance: ONDANSETRON
     Indication: NAUSEA
     Dosage: 4 MG, AS NEEDED
     Route: 048
  6. TRAZODONE [Concomitant]
     Active Substance: TRAZODONE HYDROCHLORIDE
     Indication: SLEEP DISORDER
     Dosage: 100 MG, 1X/DAY (50MG 2 AT BEDTIME BY MOUTH)
     Route: 048
  7. AZATHIOPRINE. [Concomitant]
     Active Substance: AZATHIOPRINE
     Indication: CROHN^S DISEASE
     Dosage: 50 MG, 1X/DAY
     Route: 048
  8. SERTRALINE [Concomitant]
     Active Substance: SERTRALINE HYDROCHLORIDE
     Indication: DEPRESSION
     Dosage: 150 MG, DAILY [100MG 1.5 BY MOUTH EVERYDAY. SHE TAKES ONE IT THE MORNING AND 0.5 TAB AT NIGHT]
     Route: 048
  9. GABAPENTIN. [Concomitant]
     Active Substance: GABAPENTIN
     Indication: CROHN^S DISEASE
     Dosage: 600 MG, 3X/DAY
     Route: 048
  10. CHANTIX [Suspect]
     Active Substance: VARENICLINE TARTRATE
     Dosage: 1 MG, (CONTINUING WEEK)
     Route: 048
     Dates: start: 20200111, end: 20200111

REACTIONS (7)
  - Lip swelling [Not Recovered/Not Resolved]
  - Tooth fracture [Not Recovered/Not Resolved]
  - Lip blister [Not Recovered/Not Resolved]
  - Ear pain [Unknown]
  - Swelling [Unknown]
  - Skin lesion [Not Recovered/Not Resolved]
  - Cheilitis [Not Recovered/Not Resolved]

NARRATIVE: CASE EVENT DATE: 20200108
